FAERS Safety Report 25405289 (Version 1)
Quarter: 2025Q2

REPORT INFORMATION
  Report Type: Spontaneous
  Country: DK (occurrence: DK)
  Receive Date: 20250606
  Receipt Date: 20250606
  Transmission Date: 20250716
  Serious: Yes (Other)
  Sender: AMGEN
  Company Number: None

PATIENT
  Age: 64 Year
  Sex: Male
  Weight: 90 kg

DRUGS (4)
  1. ADALIMUMAB [Suspect]
     Active Substance: ADALIMUMAB
     Indication: Sarcoidosis
     Dosage: 40 MILLIGRAM, Q2WK
     Route: 058
     Dates: start: 202501, end: 20250505
  2. METHOTREXATE SODIUM [Suspect]
     Active Substance: METHOTREXATE SODIUM
     Indication: Sarcoidosis
     Dosage: 10 MILLIGRAM, QWK
     Route: 048
     Dates: start: 202501, end: 20250423
  3. Bendroflumethiazide;Potassium chloride [Concomitant]
     Indication: Hypertension
     Dosage: 1 DOSAGE FORM, QD (STRENGTH: UNKNOWN)
     Route: 065
     Dates: start: 202412
  4. LOSARTAN POTASSIUM [Concomitant]
     Active Substance: LOSARTAN POTASSIUM
     Indication: Hypertension
     Dosage: 100 MILLIGRAM, QD
     Route: 048
     Dates: start: 202410

REACTIONS (4)
  - Erectile dysfunction [Not Recovered/Not Resolved]
  - Insomnia [Recovering/Resolving]
  - Ejaculation disorder [Not Recovered/Not Resolved]
  - Loss of libido [Not Recovered/Not Resolved]

NARRATIVE: CASE EVENT DATE: 20250101
